FAERS Safety Report 6119242-2 (Version None)
Quarter: 2009Q1

REPORT INFORMATION
  Report Type: 
  Country: None (occurrence: None)
  Receive Date: 20090316
  Receipt Date: 20090303
  Transmission Date: 20090719
  Serious: Yes (Death, Hospitalization, Other)
  Sender: FDA-Public Use
  Company Number: US-ELI_LILLY_AND_COMPANY-US200903000747

PATIENT
  Age: 73 Year
  Sex: Female

DRUGS (7)
  1. FORTEO [Suspect]
     Indication: BONE DENSITY DECREASED
     Dates: start: 20080101
  2. ATIVAN [Concomitant]
  3. LORAZEPAM [Concomitant]
  4. ARICEPT [Concomitant]
     Indication: MEMORY IMPAIRMENT
     Dates: start: 20040101
  5. ASPIRIN [Concomitant]
  6. NAMENDA [Concomitant]
     Indication: MEMORY IMPAIRMENT
     Dates: start: 20040101
  7. CALCIUM [Concomitant]

REACTIONS (5)
  - CHEST PAIN [None]
  - DECREASED APPETITE [None]
  - HEART VALVE INCOMPETENCE [None]
  - MEMORY IMPAIRMENT [None]
  - MYOCARDIAL INFARCTION [None]
